FAERS Safety Report 13337840 (Version 1)
Quarter: 2017Q1

REPORT INFORMATION
  Report Type: Report from Study
  Country: US (occurrence: US)
  Receive Date: 20170315
  Receipt Date: 20170315
  Transmission Date: 20170428
  Serious: Yes (Hospitalization, Other)
  Sender: FDA-Public Use
  Company Number: US-GILEAD-2017-0262369

PATIENT
  Age: 60 Year
  Sex: Male

DRUGS (8)
  1. AMBRISENTAN [Suspect]
     Active Substance: AMBRISENTAN
     Indication: PRODUCT USED FOR UNKNOWN INDICATION
     Dosage: 5 MG, QD
     Route: 065
  2. MORPHINE [Concomitant]
     Active Substance: MORPHINE
  3. ASPIRIN                            /00002701/ [Concomitant]
     Active Substance: ASPIRIN
  4. POTASSIUM [Concomitant]
     Active Substance: POTASSIUM
  5. LASIX [Concomitant]
     Active Substance: FUROSEMIDE
  6. FOLIC ACID. [Concomitant]
     Active Substance: FOLIC ACID
  7. JADENU [Concomitant]
     Active Substance: DEFERASIROX
  8. OXYCODONE [Concomitant]
     Active Substance: OXYCODONE

REACTIONS (2)
  - Pneumonia [Unknown]
  - Transfusion [Unknown]

NARRATIVE: CASE EVENT DATE: 20170307
